FAERS Safety Report 6501871-5 (Version None)
Quarter: 2009Q4

REPORT INFORMATION
  Report Type: 
  Country: None (occurrence: None)
  Receive Date: 20091216
  Receipt Date: 20091214
  Transmission Date: 20100525
  Serious: Yes (Hospitalization)
  Sender: FDA-Public Use
  Company Number: FR-WYE-G05136509

PATIENT
  Age: 34 Year
  Sex: Female

DRUGS (3)
  1. ADVIL [Suspect]
     Indication: ECZEMA INFECTED
     Dosage: UNKNOWN
     Route: 048
     Dates: start: 20090926, end: 20090927
  2. PYOSTACINE [Suspect]
     Indication: ECZEMA INFECTED
     Dosage: UNKNOWN
     Route: 048
     Dates: start: 20090926, end: 20090927
  3. BIRODOGYL [Suspect]
     Indication: OTORRHOEA
     Dosage: UNKNOWN
     Route: 048
     Dates: start: 20090922, end: 20090924

REACTIONS (8)
  - CONDITION AGGRAVATED [None]
  - DERMATITIS BULLOUS [None]
  - ECZEMA INFECTED [None]
  - EOSINOPHILIA [None]
  - PYREXIA [None]
  - SKIN EROSION [None]
  - SKIN PLAQUE [None]
  - VULVAR EROSION [None]
